FAERS Safety Report 4335750-9 (Version None)
Quarter: 2004Q2

REPORT INFORMATION
  Report Type: 
  Country: None (occurrence: None)
  Receive Date: 20040406
  Receipt Date: 20040322
  Transmission Date: 20050107
  Serious: Yes (Hospitalization)
  Sender: FDA-Public Use
  Company Number: UK070033

PATIENT
  Age: 13 Year
  Sex: Female
  Weight: 56 kg

DRUGS (1)
  1. NEUPOGEN [Suspect]
     Indication: CHEMOTHERAPY
     Dosage: 300 MCG, IV
     Route: 042
     Dates: start: 20040301, end: 20040301

REACTIONS (2)
  - ANAPHYLACTIC SHOCK [None]
  - INFUSION RELATED REACTION [None]
